FAERS Safety Report 9953558 (Version 1)
Quarter: 2014Q1

REPORT INFORMATION
  Report Type: Spontaneous
  Country: US (occurrence: US)
  Receive Date: 20140304
  Receipt Date: 20140304
  Transmission Date: 20141002
  Serious: Yes (Death, Other)
  Sender: FDA-Public Use
  Company Number: US-BRISTOL-MYERS SQUIBB COMPANY-20338380

PATIENT
  Age: 81 Year
  Sex: Male

DRUGS (1)
  1. ABILIFY [Suspect]
     Indication: DEMENTIA
     Dates: start: 201310

REACTIONS (5)
  - Death [Fatal]
  - Sepsis [Unknown]
  - Cholelithiasis [Unknown]
  - Cholecystitis infective [Unknown]
  - Off label use [Unknown]
